FAERS Safety Report 5734919-6 (Version None)
Quarter: 2008Q2

REPORT INFORMATION
  Report Type: 
  Country: None (occurrence: None)
  Receive Date: 20080502
  Receipt Date: 20080211
  Transmission Date: 20081010
  Serious: Yes (Disabling)
  Sender: FDA-Public Use
  Company Number: 495341

PATIENT
  Age: 82 Year
  Sex: Female
  Weight: 72.6 kg

DRUGS (2)
  1. BONIVA [Suspect]
     Dosage: 3 MG 1 PER 3 MONTH INTRAVENOUS
     Route: 042
     Dates: start: 20060626
  2. CALCIUM CARBONATE/VITAMIN D NOS (CALCIUM CARBONATE/VITAMIN D NOS) [Concomitant]

REACTIONS (8)
  - ARTHRALGIA [None]
  - ASTHENIA [None]
  - BACK PAIN [None]
  - FATIGUE [None]
  - MENTAL IMPAIRMENT [None]
  - MYALGIA [None]
  - PAIN IN EXTREMITY [None]
  - SLEEP APNOEA SYNDROME [None]
